FAERS Safety Report 7659250-3 (Version None)
Quarter: 2011Q3

REPORT INFORMATION
  Report Type: 
  Country: None (occurrence: None)
  Receive Date: 20110805
  Receipt Date: 20110725
  Transmission Date: 20111222
  Serious: Yes (Death, Hospitalization)
  Sender: FDA-Public Use
  Company Number: JP-ROCHE-774563

PATIENT
  Sex: Male
  Weight: 84 kg

DRUGS (16)
  1. RIZE [Concomitant]
     Route: 048
     Dates: start: 20110216, end: 20110404
  2. LEUCOVORIN CALCIUM [Concomitant]
     Route: 041
     Dates: start: 20100616, end: 20110401
  3. FLUOROURACIL [Concomitant]
     Indication: COLON CANCER METASTATIC
     Route: 040
     Dates: start: 20081224, end: 20100519
  4. AVASTIN [Suspect]
     Indication: COLON CANCER METASTATIC
     Route: 041
     Dates: start: 20100616, end: 20110401
  5. FLUOROURACIL [Concomitant]
     Route: 040
     Dates: start: 20100616, end: 20110401
  6. NORVASC [Concomitant]
     Route: 048
     Dates: start: 20100630, end: 20110404
  7. LEUCOVORIN CALCIUM [Concomitant]
     Indication: COLON CANCER METASTATIC
     Route: 041
     Dates: start: 20081224, end: 20100519
  8. DIOVAN [Concomitant]
     Route: 048
     Dates: start: 20100616, end: 20110404
  9. FLUOROURACIL [Concomitant]
     Route: 041
     Dates: start: 20100616, end: 20110401
  10. GOSHAJINKIGAN [Concomitant]
     Dosage: DOSE FORM: GRANULATED POWDER
     Route: 048
     Dates: start: 20100714, end: 20110404
  11. MOBIC [Concomitant]
     Route: 048
     Dates: start: 20110202, end: 20110404
  12. PRIMPERAN TAB [Concomitant]
     Route: 048
     Dates: start: 20100707, end: 20110404
  13. LYRICA [Concomitant]
     Route: 048
     Dates: start: 20110119, end: 20110404
  14. OXALIPLATIN [Concomitant]
     Route: 041
     Dates: start: 20100616, end: 20110401
  15. RIKKUNSHI-TO [Concomitant]
     Dosage: DOSE FORM: GRANULATED POWDER
     Route: 048
     Dates: start: 20100707, end: 20110404
  16. IRINOTECAN HCL [Concomitant]
     Indication: COLON CANCER METASTATIC
     Dates: start: 20081224, end: 20100519

REACTIONS (2)
  - SMALL INTESTINAL PERFORATION [None]
  - DISEASE PROGRESSION [None]
